FAERS Safety Report 7361016-9 (Version None)
Quarter: 2011Q1

REPORT INFORMATION
  Report Type: 
  Country: None (occurrence: None)
  Receive Date: 20110318
  Receipt Date: 20110307
  Transmission Date: 20110831
  Serious: Yes (Other)
  Sender: FDA-Public Use
  Company Number: IT-ROCHE-763739

PATIENT

DRUGS (5)
  1. FLUOROURACIL [Suspect]
     Dosage: DAY 1 THROUGH DAY 21 TO BE REPEATED EVERY 21 DAYS
     Route: 042
  2. TRASTUZUMAB [Suspect]
     Dosage: ON DAY 2 OF EACH CYCLE.
     Route: 065
  3. CISPLATIN [Suspect]
     Dosage: ON DAY 1 OF EACH CYCLE.
     Route: 042
  4. TRASTUZUMAB [Suspect]
     Dosage: LOADING DOSE  AT FIRST ADMINISTRATION
     Route: 065
  5. PEGYLATED LIPOSOMAL DOXORUBICIN [Suspect]
     Dosage: ON DAY 1 TO BE REPEATED EVERY 21 DAYS.
     Route: 042

REACTIONS (11)
  - DIARRHOEA [None]
  - VOMITING [None]
  - SEPSIS [None]
  - NEUTROPENIA [None]
  - NAUSEA [None]
  - ASTHENIA [None]
  - LEUKOPENIA [None]
  - PALMAR-PLANTAR ERYTHRODYSAESTHESIA SYNDROME [None]
  - DEEP VEIN THROMBOSIS [None]
  - ANAEMIA [None]
  - BONE MARROW TOXICITY [None]
